FAERS Safety Report 5089777-2 (Version None)
Quarter: 2006Q3

REPORT INFORMATION
  Report Type: 
  Country: None (occurrence: None)
  Receive Date: 20060731
  Receipt Date: 20060112
  Transmission Date: 20061208
  Serious: Yes (Hospitalization)
  Sender: FDA-Public Use
  Company Number: US200601002132

PATIENT
  Age: 76 Year
  Sex: Female

DRUGS (3)
  1. FORTEO [Suspect]
     Indication: OSTEOPOROSIS
     Dates: start: 20050911
  2. FORTEO [Concomitant]
  3. DIGOXIN [Concomitant]

REACTIONS (2)
  - CARDIAC DISORDER [None]
  - VOMITING [None]
